FAERS Safety Report 5363468-2 (Version None)
Quarter: 2007Q2

REPORT INFORMATION
  Report Type: 
  Country: None (occurrence: None)
  Receive Date: 20070618
  Receipt Date: 20070606
  Transmission Date: 20071010
  Serious: Yes (Other)
  Sender: FDA-Public Use
  Company Number: 2007RL000261

PATIENT
  Age: 82 Year
  Sex: Male

DRUGS (2)
  1. RYTHMOL [Suspect]
     Indication: ATRIAL FIBRILLATION
     Dosage: PO
     Route: 048
     Dates: start: 20050101
  2. COUMADIN [Concomitant]

REACTIONS (4)
  - AMNESIA [None]
  - APHASIA [None]
  - NERVOUS SYSTEM DISORDER [None]
  - TREMOR [None]
